FAERS Safety Report 5950847-5 (Version None)
Quarter: 2008Q4

REPORT INFORMATION
  Report Type: 
  Country: None (occurrence: None)
  Receive Date: 20081110
  Receipt Date: 20081029
  Transmission Date: 20090506
  Serious: Yes (Other)
  Sender: FDA-Public Use
  Company Number: TPH-00116

PATIENT
  Age: 20 Year
  Sex: Female

DRUGS (1)
  1. TRIQUILAR [Suspect]
     Indication: CONTRACEPTION
     Dosage: ORAL
     Route: 048
     Dates: start: 20080806, end: 20080901

REACTIONS (5)
  - ABDOMINAL PAIN [None]
  - BREAST PAIN [None]
  - HYPOMENORRHOEA [None]
  - PRE-EXISTING CONDITION IMPROVED [None]
  - SOMNOLENCE [None]
